FAERS Safety Report 24024097 (Version 1)
Quarter: 2024Q2

REPORT INFORMATION
  Report Type: Report from Study
  Country: CL (occurrence: CL)
  Receive Date: 20240627
  Receipt Date: 20240627
  Transmission Date: 20240716
  Serious: No
  Sender: FDA-Public Use
  Company Number: CL-ROCHE-3519422

PATIENT
  Age: 57 Year
  Sex: Female

DRUGS (2)
  1. PHESGO [Suspect]
     Active Substance: HYALURONIDASE-ZZXF\PERTUZUMAB\TRASTUZUMAB
     Indication: HER2 positive breast cancer
     Dosage: 600/600?DATE OF THE LAST ADMINISTRATION: C2 22/FEB/2024
     Route: 058
     Dates: start: 20240201
  2. DOCETAXEL [Concomitant]
     Active Substance: DOCETAXEL\DOCETAXEL ANHYDROUS
     Indication: HER2 positive breast cancer
     Route: 042
     Dates: start: 20240201

REACTIONS (1)
  - Urinary tract infection [Unknown]

NARRATIVE: CASE EVENT DATE: 20240203
